FAERS Safety Report 11697397 (Version 1)
Quarter: 2015Q4

REPORT INFORMATION
  Report Type: Spontaneous
  Country: BR (occurrence: BR)
  Receive Date: 20151104
  Receipt Date: 20151104
  Transmission Date: 20160304
  Serious: Yes (Death)
  Sender: FDA-Public Use
  Company Number: BR-ASTRAZENECA-2015SF05784

PATIENT
  Age: 32614 Day
  Sex: Male

DRUGS (1)
  1. ATACAND [Suspect]
     Active Substance: CANDESARTAN CILEXETIL
     Route: 048
     Dates: start: 2010

REACTIONS (2)
  - Cerebrovascular accident [Fatal]
  - Hypertension [Fatal]

NARRATIVE: CASE EVENT DATE: 20141210
